FAERS Safety Report 8058216-1 (Version None)
Quarter: 2012Q1

REPORT INFORMATION
  Report Type: 
  Country: None (occurrence: None)
  Receive Date: 20120120
  Receipt Date: 20120113
  Transmission Date: 20120608
  Serious: Yes (Hospitalization, Disabling)
  Sender: FDA-Public Use
  Company Number: GB-RANBAXY-2012R1-51955

PATIENT
  Age: 81 Year
  Sex: Male
  Weight: 61.7 kg

DRUGS (8)
  1. CLARITHROMYCIN [Concomitant]
     Indication: PRODUCT USED FOR UNKNOWN INDICATION
     Dosage: UNK
     Route: 065
     Dates: start: 20111221, end: 20111228
  2. LAXIDO [Concomitant]
     Dosage: UNK
     Route: 065
     Dates: start: 20111116, end: 20111117
  3. WARFARIN SODIUM [Concomitant]
     Indication: PRODUCT USED FOR UNKNOWN INDICATION
     Dosage: UNK
     Route: 065
     Dates: start: 20110919, end: 20120104
  4. LAXIDO [Concomitant]
     Dosage: UNK
     Route: 065
     Dates: start: 20111207, end: 20111208
  5. DIGOXIN [Concomitant]
     Indication: PRODUCT USED FOR UNKNOWN INDICATION
     Dosage: UNK
     Route: 065
     Dates: start: 20111212
  6. LAXIDO [Concomitant]
     Indication: PRODUCT USED FOR UNKNOWN INDICATION
     Dosage: UNK
     Route: 065
     Dates: start: 20111006, end: 20111007
  7. METFORMIN HCL [Concomitant]
     Indication: PRODUCT USED FOR UNKNOWN INDICATION
     Dosage: UNK
     Route: 065
     Dates: start: 20110919, end: 20120104
  8. GABAPENTIN [Suspect]
     Indication: PRODUCT USED FOR UNKNOWN INDICATION
     Dosage: UNK
     Route: 065
     Dates: start: 20110601

REACTIONS (3)
  - CEREBRAL INFARCTION [None]
  - CONFUSIONAL STATE [None]
  - SEDATION [None]
